FAERS Safety Report 14487139 (Version 1)
Quarter: 2018Q1

REPORT INFORMATION
  Report Type: Spontaneous
  Country: US (occurrence: US)
  Receive Date: 20180204
  Receipt Date: 20180204
  Transmission Date: 20180509
  Serious: No
  Sender: FDA-Public Use
  Company Number: None

PATIENT
  Sex: Male
  Weight: 9.45 kg

DRUGS (6)
  1. ORAL ANTIBIOTICS [Concomitant]
     Active Substance: UNSPECIFIED INGREDIENT
  2. VASELINE PURE [Concomitant]
     Active Substance: PETROLATUM
  3. ZARABEES [Concomitant]
  4. MUPIROCIN OINTMENT, USP 2% PERRIGO [Suspect]
     Active Substance: MUPIROCIN
     Indication: SKIN INFECTION
     Dosage: QUANTITY:1 THIN LAYER;?
     Route: 061
     Dates: start: 20180127, end: 20180131
  5. VITAMIN D [Concomitant]
     Active Substance: CHOLECALCIFEROL
  6. 1% HYDROCORTISONE [Concomitant]
     Active Substance: HYDROCORTISONE

REACTIONS (4)
  - Rash [None]
  - Skin irritation [None]
  - Rash erythematous [None]
  - Skin exfoliation [None]

NARRATIVE: CASE EVENT DATE: 20180129
